FAERS Safety Report 4340539-0 (Version None)
Quarter: 2004Q2

REPORT INFORMATION
  Report Type: 
  Country: None (occurrence: None)
  Receive Date: 20040414
  Receipt Date: 20040402
  Transmission Date: 20050107
  Serious: Yes (Hospitalization)
  Sender: FDA-Public Use
  Company Number: A106402

PATIENT
  Age: 54 Year
  Sex: Female

DRUGS (10)
  1. AMLODIPINE [Suspect]
     Indication: HYPERTENSION
     Dosage: 10 MG (DAILY), ORAL
     Route: 048
     Dates: start: 19980301, end: 20010719
  2. QUINAPRIL HCL [Suspect]
     Indication: HYPERTENSION
     Dosage: 20 MG (DAILY), ORAL
     Route: 048
     Dates: start: 20011105
  3. ESTRADIOL COMBINATIONS (ESTRADIOL, COMBINATIONS) [Concomitant]
  4. ATORVASTATIN (ATORVASTATIN) [Concomitant]
  5. ISOSORBIDE MONONITRATE [Concomitant]
  6. ALL OTHER THERAPEUTIC PRODUCTS (ALL OTHER THERAPEUTIC PRODUCTS) [Concomitant]
  7. ACETYLSALICYLIC ACID SRT [Concomitant]
  8. CALCITE D (CALCIUM CARBONATE, ERGOCALCIFEROL) [Concomitant]
  9. VERAPAMIL [Concomitant]
  10. PREDNISONE [Concomitant]

REACTIONS (8)
  - BACK PAIN [None]
  - BLOOD PRESSURE INCREASED [None]
  - BRONCHITIS [None]
  - CHEST PAIN [None]
  - CORONARY ARTERY OCCLUSION [None]
  - DYSPNOEA [None]
  - FATIGUE [None]
  - OEDEMA PERIPHERAL [None]
